FAERS Safety Report 13591768 (Version 3)
Quarter: 2017Q3

REPORT INFORMATION
  Report Type: Report from Study
  Country: JP (occurrence: JP)
  Receive Date: 20170530
  Receipt Date: 20170905
  Transmission Date: 20171127
  Serious: Yes (Death, Hospitalization)
  Sender: FDA-Public Use
  Company Number: JP-EISAI MEDICAL RESEARCH-EC-2017-027887

PATIENT
  Age: 74 Year
  Sex: Male
  Weight: 76 kg

DRUGS (28)
  1. LENVIMA [Suspect]
     Active Substance: LENVATINIB
     Route: 048
     Dates: start: 20150725, end: 20150728
  2. LENVIMA [Suspect]
     Active Substance: LENVATINIB
     Route: 048
     Dates: start: 20150826, end: 20150925
  3. OXINORM [Concomitant]
     Active Substance: OXYCODONE HYDROCHLORIDE
  4. PASTARON [Concomitant]
     Active Substance: UREA
  5. PETROLATUM SALICYLATE [Concomitant]
  6. LECICARBON(SODIUM BICARBONATE/ANHYDROUS MONOBASIC SODIUM PHOSPHATE) [Concomitant]
  7. BIOFERMIN [Concomitant]
     Active Substance: BACILLUS SUBTILIS\LACTOBACILLUS ACIDOPHILUS\STREPTOCOCCUS FAECAIS
  8. FEBURIC [Concomitant]
     Active Substance: FEBUXOSTAT
  9. RINDERON V [Concomitant]
     Active Substance: BETAMETHASONE VALERATE
  10. AZUNOL [Concomitant]
     Active Substance: SODIUM GUALENATE
  11. LOXONIN [Concomitant]
     Active Substance: LOXOPROFEN SODIUM
  12. NOVAMIN (PROCHLORPERAZINE MALEATE) [Concomitant]
     Active Substance: PROCHLORPERAZINE MALEATE
  13. PYDOXAL [Concomitant]
     Active Substance: PYRIDOXAL
  14. OXYCONTIN [Concomitant]
     Active Substance: OXYCODONE HYDROCHLORIDE
  15. AMLODIPINE [Concomitant]
     Active Substance: AMLODIPINE BESYLATE
  16. BLOPRESS [Concomitant]
     Active Substance: CANDESARTAN CILEXETIL
  17. HIRUDOID [Concomitant]
     Active Substance: GLYCOSAMINOGLYCANS
  18. BARAMYCIN [Concomitant]
     Active Substance: BACITRACIN\NEOMYCIN SULFATE
  19. LENVIMA [Suspect]
     Active Substance: LENVATINIB
     Route: 048
     Dates: start: 20150722, end: 20150724
  20. LENVIMA [Suspect]
     Active Substance: LENVATINIB
     Route: 048
     Dates: start: 20150812, end: 20150818
  21. LEVOTHYROXINE SODIUM HYDRATE [Concomitant]
     Active Substance: LEVOTHYROXINE SODIUM
  22. MAGMITT [Concomitant]
     Active Substance: MAGNESIUM OXIDE
  23. ANTEBATE [Concomitant]
     Active Substance: BETAMETHASONE DIPROPIONATE
  24. PROPETO [Concomitant]
  25. DICLOFENAC SODIUM. [Concomitant]
     Active Substance: DICLOFENAC SODIUM
  26. LENVIMA [Suspect]
     Active Substance: LENVATINIB
     Route: 048
     Dates: start: 20150729, end: 20150803
  27. LENVIMA [Suspect]
     Active Substance: LENVATINIB
     Route: 048
     Dates: start: 20150926, end: 20150928
  28. CONSTAN [Concomitant]
     Active Substance: ALPRAZOLAM

REACTIONS (2)
  - Malignant neoplasm progression [Fatal]
  - Lower gastrointestinal perforation [Recovering/Resolving]

NARRATIVE: CASE EVENT DATE: 20150929
